FAERS Safety Report 7211460-5 (Version None)
Quarter: 2011Q1

REPORT INFORMATION
  Report Type: 
  Country: None (occurrence: None)
  Receive Date: 20110105
  Receipt Date: 20101215
  Transmission Date: 20110831
  Serious: No
  Sender: FDA-Public Use
  Company Number: US-B.I. PHARMACEUTICALS,INC./RIDGEFIELD-2010-BP-14820BP

PATIENT
  Age: 83 Year
  Sex: Female

DRUGS (5)
  1. NORVASC [Concomitant]
     Indication: HYPERTENSION
  2. PRADAXA [Suspect]
     Indication: ATRIAL FIBRILLATION
  3. DIOVAN [Concomitant]
     Indication: HYPERTENSION
  4. NAMENDA [Concomitant]
     Indication: DEMENTIA
  5. PRADAXA [Suspect]
     Indication: CEREBROVASCULAR ACCIDENT PROPHYLAXIS
     Dosage: 300 MG
     Route: 048
     Dates: start: 20101101

REACTIONS (1)
  - ERUCTATION [None]
